FAERS Safety Report 9155200 (Version 1)
Quarter: 2013Q1

REPORT INFORMATION
  Report Type: Spontaneous
  Country: US (occurrence: US)
  Receive Date: 20130311
  Receipt Date: 20130311
  Transmission Date: 20140127
  Serious: Yes (Death)
  Sender: FDA-Public Use
  Company Number: US-GILEAD-2013-0071464

PATIENT
  Age: 85 Year
  Sex: Female

DRUGS (11)
  1. LETAIRIS [Suspect]
     Indication: PRODUCT USED FOR UNKNOWN INDICATION
     Dosage: 10 MG, QD
     Dates: start: 20120203
  2. REQUIP [Concomitant]
  3. ISOSORBIDE DINITRATE [Concomitant]
  4. AMLODIPINE [Concomitant]
  5. AMIODARONE [Concomitant]
  6. PRIMIDONE [Concomitant]
  7. LEVOTHYROXINE [Concomitant]
  8. NEXIUM                             /01479302/ [Concomitant]
  9. NATEGLINIDE [Concomitant]
  10. WARFARIN [Concomitant]
  11. FUROSEMIDE [Concomitant]

REACTIONS (1)
  - Death [Fatal]
